FAERS Safety Report 8927593 (Version 1)
Quarter: 2012Q4

REPORT INFORMATION
  Report Type: 
  Country: US (occurrence: US)
  Receive Date: 20121127
  Receipt Date: 20121127
  Transmission Date: 20130627
  Serious: Yes (Other)
  Sender: FDA-Public Use
  Company Number: US-009507513-1211USA008955

PATIENT
  Age: 19 Year
  Sex: Female

DRUGS (1)
  1. MK-0826 [Suspect]
     Indication: ABSCESS
     Route: 065

REACTIONS (9)
  - Post-traumatic epilepsy [Recovered/Resolved]
  - Road traffic accident [None]
  - Subarachnoid haemorrhage [None]
  - Subdural haematoma [None]
  - Brain contusion [None]
  - Convulsion [None]
  - Abscess [None]
  - Streptococcus test positive [None]
  - Klebsiella test positive [None]
